FAERS Safety Report 4494071-4 (Version None)
Quarter: 2004Q4

REPORT INFORMATION
  Report Type: 
  Country: None (occurrence: None)
  Receive Date: 20041105
  Receipt Date: 20041026
  Transmission Date: 20050328
  Serious: Yes (Life-Threatening, Hospitalization)
  Sender: FDA-Public Use
  Company Number: US-MERCK-0410USA03945

PATIENT
  Sex: Female

DRUGS (2)
  1. EMEND [Suspect]
     Route: 048
  2. ANTINEOPLASTIC (UNSPECIFIED) [Concomitant]
     Route: 065

REACTIONS (1)
  - BLOOD PRESSURE DECREASED [None]
